FAERS Safety Report 5314459-9 (Version None)
Quarter: 2007Q2

REPORT INFORMATION
  Report Type: 
  Country: None (occurrence: None)
  Receive Date: 20070502
  Receipt Date: 20070423
  Transmission Date: 20071010
  Serious: Yes (Life-Threatening, Hospitalization)
  Sender: FDA-Public Use
  Company Number: DE-BAYER-200615903GDS

PATIENT
  Age: 52 Year
  Sex: Male
  Weight: 86 kg

DRUGS (18)
  1. ACTIMAX [Suspect]
     Indication: BRONCHITIS
     Dosage: TOTAL DAILY DOSE: 400 MG  UNIT DOSE: 400 MG
     Route: 048
     Dates: start: 20061108, end: 20061108
  2. L-THYROX JOD HEXAL (LEVOTHYROXINE) [Concomitant]
     Indication: DRUG USE FOR UNKNOWN INDICATION
     Route: 048
  3. SINUPRET [Concomitant]
     Indication: RHINITIS
     Route: 065
  4. PARACETAMOL [Concomitant]
     Indication: UNEVALUABLE EVENT
     Dosage: UNIT DOSE: 500 MG
     Route: 065
  5. ACC [Concomitant]
     Indication: UNEVALUABLE EVENT
     Dosage: UNIT DOSE: 300 MG
     Route: 065
  6. AVELOX [Concomitant]
     Indication: LUNG INFECTION
     Dosage: TOTAL DAILY DOSE: 400 MG  UNIT DOSE: 400 MG
     Route: 065
  7. JODETTEN [Concomitant]
     Indication: UNEVALUABLE EVENT
     Route: 065
  8. RANITIDIN 300 [Concomitant]
     Indication: UNEVALUABLE EVENT
     Route: 065
  9. TAVOR 1 [Concomitant]
     Indication: UNEVALUABLE EVENT
     Route: 065
  10. KALINOR BT 40 [Concomitant]
     Indication: UNEVALUABLE EVENT
     Route: 065
  11. METOCLOPRAMID [Concomitant]
     Indication: UNEVALUABLE EVENT
     Dosage: UNIT DOSE: 20 MG
     Route: 065
  12. SAB SIMPLEX [Concomitant]
     Indication: UNEVALUABLE EVENT
     Route: 065
  13. CITALOPRAM HYDROBROMIDE [Concomitant]
     Indication: UNEVALUABLE EVENT
     Route: 065
  14. SALBUTAMOL INHALATION [Concomitant]
     Indication: UNEVALUABLE EVENT
  15. ATROVENT [Concomitant]
     Indication: UNEVALUABLE EVENT
  16. FRAGMIN PF [Concomitant]
     Indication: UNEVALUABLE EVENT
     Route: 065
  17. OTRIVEN [Concomitant]
     Indication: UNEVALUABLE EVENT
     Route: 065
  18. MOVICOL [Concomitant]
     Indication: UNEVALUABLE EVENT
     Route: 065

REACTIONS (10)
  - ASTHENIA [None]
  - DRUG HYPERSENSITIVITY [None]
  - DYSARTHRIA [None]
  - DYSPNOEA [None]
  - GLOSSODYNIA [None]
  - GUILLAIN-BARRE SYNDROME [None]
  - HYPOREFLEXIA [None]
  - MUSCULAR WEAKNESS [None]
  - RASH PRURITIC [None]
  - THROMBOCYTOPENIA [None]
